FAERS Safety Report 9502331 (Version 1)
Quarter: 2013Q3

REPORT INFORMATION
  Report Type: Spontaneous
  Country: US (occurrence: US)
  Receive Date: 20130906
  Receipt Date: 20130906
  Transmission Date: 20140515
  Serious: No
  Sender: FDA-Public Use
  Company Number: US-BIOGENIDEC-2013BI081718

PATIENT
  Sex: Female

DRUGS (1)
  1. TYSABRI [Suspect]
     Indication: MULTIPLE SCLEROSIS
     Route: 042
     Dates: start: 20130228

REACTIONS (7)
  - Vulvovaginal mycotic infection [Recovered/Resolved]
  - Vulvovaginal dryness [Unknown]
  - Vulvovaginal rash [Recovered/Resolved]
  - Sputum discoloured [Recovered/Resolved]
  - Fatigue [Unknown]
  - Genital herpes [Recovered/Resolved]
  - Lower respiratory tract infection [Recovered/Resolved]
